FAERS Safety Report 12640632 (Version 1)
Quarter: 2016Q3

REPORT INFORMATION
  Report Type: Report from Study
  Country: FR (occurrence: FR)
  Receive Date: 20160810
  Receipt Date: 20160810
  Transmission Date: 20161109
  Serious: Yes (Hospitalization)
  Sender: FDA-Public Use
  Company Number: PHHY2016FR108821

PATIENT
  Age: 78 Year
  Sex: Male
  Weight: 97 kg

DRUGS (3)
  1. OROKEN [Suspect]
     Active Substance: CEFIXIME
     Indication: URINARY TRACT INFECTION
     Route: 048
  2. CANDESARTAN/HCTZ [Suspect]
     Active Substance: CANDESARTAN CILEXETIL\HYDROCHLOROTHIAZIDE
     Indication: HYPERTENSION
     Dosage: 8/12.5
     Route: 065
     Dates: start: 2013, end: 20160613
  3. ULTIBRO BREEZHALER [Suspect]
     Active Substance: GLYCOPYRRONIUM\INDACATEROL
     Indication: CHRONIC OBSTRUCTIVE PULMONARY DISEASE
     Dosage: UNK
     Route: 065
     Dates: start: 20160322

REACTIONS (4)
  - Prostate induration [Unknown]
  - Prostate cancer [Unknown]
  - Prerenal failure [Unknown]
  - Bladder cancer [Unknown]

NARRATIVE: CASE EVENT DATE: 20160713
